FAERS Safety Report 15565181 (Version 1)
Quarter: 2018Q4

REPORT INFORMATION
  Report Type: Spontaneous
  Country: US (occurrence: US)
  Receive Date: 20181024
  Receipt Date: 20181024
  Transmission Date: 20190205
  Serious: No
  Sender: FDA-Public Use
  Company Number: None

PATIENT
  Age: 45 Year
  Sex: Female
  Weight: 67 kg

DRUGS (1)
  1. ELOXATIN [Suspect]
     Active Substance: OXALIPLATIN
     Dates: end: 20180912

REACTIONS (3)
  - Neurotoxicity [None]
  - Aspartate aminotransferase increased [None]
  - Therapy change [None]

NARRATIVE: CASE EVENT DATE: 20181008
